FAERS Safety Report 13718063 (Version 1)
Quarter: 2017Q3

REPORT INFORMATION
  Report Type: Spontaneous
  Country: IT (occurrence: IT)
  Receive Date: 20170705
  Receipt Date: 20170705
  Transmission Date: 20171127
  Serious: Yes (Other)
  Sender: FDA-Public Use
  Company Number: IT-FRESENIUS KABI-FK201705612

PATIENT
  Age: 65 Year
  Sex: Female

DRUGS (1)
  1. LEVOFLOXACIN (MANUFACTURER UNKNOWN) [Suspect]
     Active Substance: LEVOFLOXACIN
     Indication: ARTHROPOD STING
     Route: 065

REACTIONS (3)
  - Hypersensitivity [Recovering/Resolving]
  - Cough [Recovering/Resolving]
  - Circumoral oedema [Recovering/Resolving]

NARRATIVE: CASE EVENT DATE: 20170622
